FAERS Safety Report 4599760-9 (Version None)
Quarter: 2005Q1

REPORT INFORMATION
  Report Type: 
  Country: None (occurrence: None)
  Receive Date: 20050303
  Receipt Date: 20050218
  Transmission Date: 20050727
  Serious: Yes (Hospitalization, Other)
  Sender: FDA-Public Use
  Company Number: 8009078

PATIENT
  Age: 54 Year
  Sex: Male
  Weight: 86.36 kg

DRUGS (6)
  1. KEPPRA [Suspect]
     Indication: CONVULSION
     Dosage: 500 MEQ 3/D PO, 750 MG 3/D PO
     Route: 048
     Dates: start: 20040101, end: 20040401
  2. KEPPRA [Suspect]
     Indication: CONVULSION
     Dosage: 500 MEQ 3/D PO, 750 MG 3/D PO
     Route: 048
     Dates: start: 20040401
  3. DILANTIN [Suspect]
     Dosage: PO
     Route: 048
     Dates: end: 20040401
  4. MULTIVITAMIN [Concomitant]
  5. TYLENOL (CAPLET) [Concomitant]
  6. CHLOR-TRIMETON [Concomitant]

REACTIONS (11)
  - ABNORMAL BEHAVIOUR [None]
  - CONVULSION [None]
  - DRUG HYPERSENSITIVITY [None]
  - DRUG TOXICITY [None]
  - DYSKINESIA [None]
  - ELECTROENCEPHALOGRAM ABNORMAL [None]
  - FLATULENCE [None]
  - HALLUCINATION, AUDITORY [None]
  - LOSS OF CONSCIOUSNESS [None]
  - PARANOIA [None]
  - RADIUS FRACTURE [None]
